FAERS Safety Report 24748746 (Version 3)
Quarter: 2025Q1

REPORT INFORMATION
  Report Type: Spontaneous
  Country: JP (occurrence: JP)
  Receive Date: 20241218
  Receipt Date: 20250110
  Transmission Date: 20250409
  Serious: Yes (Life-Threatening, Hospitalization, Other)
  Sender: PFIZER
  Company Number: JP-PFIZER INC-PV202400163408

PATIENT
  Age: 51 Year
  Sex: Female

DRUGS (2)
  1. CRIZOTINIB [Suspect]
     Active Substance: CRIZOTINIB
     Indication: Lung adenocarcinoma
  2. CRIZOTINIB [Suspect]
     Active Substance: CRIZOTINIB
     Indication: ROS1 gene rearrangement

REACTIONS (1)
  - Renal abscess [Recovering/Resolving]
